FAERS Safety Report 8271511-6 (Version None)
Quarter: 2012Q1

REPORT INFORMATION
  Report Type: 
  Country: None (occurrence: None)
  Receive Date: 20120327
  Receipt Date: 20100324
  Transmission Date: 20120608
  Serious: Yes (Other)
  Sender: FDA-Public Use
  Company Number: PHEH2010US03303

PATIENT
  Age: 74 Year
  Sex: Female

DRUGS (8)
  1. GLYBURIDE [Concomitant]
  2. PREVACID [Concomitant]
  3. LIPITOR [Concomitant]
  4. DIOVAN [Concomitant]
  5. GLEEVEC [Suspect]
     Indication: CHRONIC MYELOID LEUKAEMIA
     Dosage: 400 MG
     Dates: start: 20050401
  6. PLAVIX [Concomitant]
  7. EVISTA [Concomitant]
  8. ASPIRIN [Concomitant]

REACTIONS (6)
  - EYE SWELLING [None]
  - OEDEMA PERIPHERAL [None]
  - FACE OEDEMA [None]
  - FEELING ABNORMAL [None]
  - DIZZINESS [None]
  - NAUSEA [None]
